FAERS Safety Report 17118551 (Version 1)
Quarter: 2019Q4

REPORT INFORMATION
  Report Type: Spontaneous
  Country: ES (occurrence: ES)
  Receive Date: 20191206
  Receipt Date: 20191206
  Transmission Date: 20200122
  Serious: Yes (Hospitalization, Other)
  Sender: FDA-Public Use
  Company Number: ES-BRISTOL-MYERS SQUIBB COMPANY-BMS-2019-115083

PATIENT
  Age: 54 Year
  Sex: Female

DRUGS (1)
  1. NIVOLUMAB [Suspect]
     Active Substance: NIVOLUMAB
     Indication: SQUAMOUS CELL CARCINOMA OF HEAD AND NECK
     Dosage: 3 MILLIGRAM/KILOGRAM, Q2WK
     Route: 065
     Dates: start: 201711

REACTIONS (10)
  - Nausea [Unknown]
  - Off label use [Unknown]
  - Therapeutic response decreased [Unknown]
  - Blood folate decreased [Unknown]
  - Weight decreased [Unknown]
  - Gastrointestinal wall thickening [Unknown]
  - Vomiting [Unknown]
  - Chronic gastritis [Unknown]
  - Immune-mediated hypothyroidism [Unknown]
  - Iron deficiency [Unknown]

NARRATIVE: CASE EVENT DATE: 201809
